FAERS Safety Report 21713561 (Version 1)
Quarter: 2022Q4

REPORT INFORMATION
  Report Type: Spontaneous
  Country: US (occurrence: None)
  Receive Date: 20221208
  Receipt Date: 20221208
  Transmission Date: 20230112
  Serious: No
  Sender: FDA-Public Use
  Company Number: None

PATIENT
  Age: 32 Year
  Sex: Male

DRUGS (3)
  1. DEXAMETHASONE [Suspect]
     Active Substance: DEXAMETHASONE
     Indication: Oropharyngeal pain
     Dosage: FREQUENCY : ONCE;?OTHER ROUTE : IV;?
     Route: 050
     Dates: start: 20220812, end: 20220812
  2. DEXAMETHASONE [Suspect]
     Active Substance: DEXAMETHASONE
     Indication: Tonsillar disorder
  3. DEXAMETHASONE [Suspect]
     Active Substance: DEXAMETHASONE
     Indication: Lymphadenopathy

REACTIONS (2)
  - Bradycardia [None]
  - Paraesthesia [None]

NARRATIVE: CASE EVENT DATE: 20220812
